FAERS Safety Report 20107347 (Version 1)
Quarter: 2021Q4

REPORT INFORMATION
  Report Type: Report from Study
  Country: BR (occurrence: BR)
  Receive Date: 20211124
  Receipt Date: 20211124
  Transmission Date: 20220303
  Serious: Yes (Disabling, Other)
  Sender: FDA-Public Use
  Company Number: BR-NOVARTISPH-NVSC2021BR266064

PATIENT
  Age: 50 Year
  Sex: Female

DRUGS (1)
  1. LETROZOLE [Suspect]
     Active Substance: LETROZOLE
     Indication: Product used for unknown indication
     Dosage: UNK
     Route: 065

REACTIONS (9)
  - Blindness [Unknown]
  - Femur fracture [Unknown]
  - Metastases to bone [Unknown]
  - Breast cancer [Unknown]
  - Limb deformity [Unknown]
  - Monoplegia [Unknown]
  - Brachial plexus injury [Unknown]
  - Mydriasis [Unknown]
  - Pain [Recovered/Resolved]

NARRATIVE: CASE EVENT DATE: 20200813
